FAERS Safety Report 9230025 (Version 1)
Quarter: 2013Q2

REPORT INFORMATION
  Report Type: Spontaneous
  Country: US (occurrence: US)
  Receive Date: 20130415
  Receipt Date: 20130415
  Transmission Date: 20140414
  Serious: No
  Sender: FDA-Public Use
  Company Number: US-JNJFOC-20130314178

PATIENT
  Sex: Male
  Weight: 90.72 kg

DRUGS (5)
  1. INVEGA SUSTENNA [Suspect]
     Indication: SCHIZOAFFECTIVE DISORDER
     Route: 030
     Dates: start: 20120214, end: 20130314
  2. ARTANE [Concomitant]
     Route: 065
  3. RISPERDAL [Concomitant]
     Indication: SCHIZOAFFECTIVE DISORDER
     Route: 048
  4. DEPAKOTE [Concomitant]
     Route: 065
  5. PROLIXIN [Concomitant]
     Route: 048

REACTIONS (2)
  - Injection site mass [Unknown]
  - Injection site pain [Unknown]
